FAERS Safety Report 5564743-9 (Version None)
Quarter: 2007Q4

REPORT INFORMATION
  Report Type: 
  Country: None (occurrence: None)
  Receive Date: 20071213
  Receipt Date: 20071213
  Transmission Date: 20080405
  Serious: No
  Sender: FDA-Public Use
  Company Number: None

PATIENT
  Age: 58 Year
  Sex: Female
  Weight: 61.2356 kg

DRUGS (1)
  1. EFFEXOR XR [Suspect]
     Indication: DEPRESSION
     Dosage: 37.5  Q DAILY
     Dates: start: 20070214, end: 20071124

REACTIONS (3)
  - ARTHRALGIA [None]
  - DECREASED ACTIVITY [None]
  - PAIN IN EXTREMITY [None]
